FAERS Safety Report 11153415 (Version 3)
Quarter: 2015Q2

REPORT INFORMATION
  Report Type: Report from Study
  Country: AR (occurrence: AR)
  Receive Date: 20150602
  Receipt Date: 20150612
  Transmission Date: 20150821
  Serious: Yes (Death, Other)
  Sender: FDA-Public Use
  Company Number: PHHY2015AR065640

PATIENT
  Age: 62 Year
  Sex: Male

DRUGS (4)
  1. LORAZEPAM. [Concomitant]
     Active Substance: LORAZEPAM
     Indication: PRODUCT USED FOR UNKNOWN INDICATION
     Dosage: 5 MG, QD
     Route: 065
     Dates: end: 20150429
  2. BIPERIDEN [Concomitant]
     Active Substance: BIPERIDEN
     Indication: PRODUCT USED FOR UNKNOWN INDICATION
     Dosage: 4 MG, QD
     Route: 065
     Dates: end: 20150429
  3. CLOZARIL [Suspect]
     Active Substance: CLOZAPINE
     Indication: MENTAL DISORDER
     Dosage: 600 MG, QD
     Route: 048
  4. CLOZARIL [Suspect]
     Active Substance: CLOZAPINE
     Dosage: 600 MG, QD
     Route: 048
     Dates: end: 20150429

REACTIONS (3)
  - Off label use [Unknown]
  - Cardiovascular insufficiency [Fatal]
  - Congestive cardiomyopathy [Unknown]

NARRATIVE: CASE EVENT DATE: 20150501
